FAERS Safety Report 18216583 (Version 1)
Quarter: 2020Q3

REPORT INFORMATION
  Report Type: Spontaneous
  Country: GB (occurrence: GB)
  Receive Date: 20200901
  Receipt Date: 20200901
  Transmission Date: 20201103
  Serious: Yes (Death, Hospitalization, Other)
  Sender: FDA-Public Use
  Company Number: GB-AUROBINDO-AUR-APL-2010-01003

PATIENT
  Age: 46 Year
  Sex: Male

DRUGS (12)
  1. DEXAMETHASONE. [Suspect]
     Active Substance: DEXAMETHASONE
     Indication: ROUTINE HEALTH MAINTENANCE
     Dosage: 4 MILLIGRAM, ONCE A DAY
     Route: 048
  2. FLUDROCORTISONE [Suspect]
     Active Substance: FLUDROCORTISONE
     Indication: HYPONATRAEMIA
     Dosage: UNK
     Route: 065
  3. DEXAMETHASONE. [Suspect]
     Active Substance: DEXAMETHASONE
     Indication: FATIGUE
     Dosage: 2 MILLIGRAM, ONCE A DAY
     Route: 048
  4. KETAMINE [Concomitant]
     Active Substance: KETAMINE
     Indication: ANALGESIC THERAPY
     Dosage: UNK
     Route: 065
  5. MORPHINE SULFATE. [Concomitant]
     Active Substance: MORPHINE SULFATE
     Indication: ANALGESIC THERAPY
     Dosage: 90 MILLIGRAM,EVERY 12 DAYS
     Route: 065
  6. CARBOPLATIN. [Suspect]
     Active Substance: CARBOPLATIN
     Indication: METASTATIC MALIGNANT MELANOMA
     Dosage: UNK
     Route: 065
  7. HYDROCORTISONE. [Suspect]
     Active Substance: HYDROCORTISONE
     Indication: PRODUCT USED FOR UNKNOWN INDICATION
     Dosage: UNK
     Route: 042
  8. NAPROXEN TABLETS 500 MG [Suspect]
     Active Substance: NAPROXEN
     Indication: ANALGESIC THERAPY
     Dosage: 500 MILLIGRAM, TWO TIMES A DAY
     Route: 065
  9. MOVICOL [Suspect]
     Active Substance: POLYETHYLENE GLYCOL 3350\POTASSIUM CHLORIDE\SODIUM BICARBONATE\SODIUM CHLORIDE
     Indication: CONSTIPATION
     Dosage: UNK
     Route: 065
  10. DIAMORPHINE [Concomitant]
     Active Substance: DIAMORPHINE
     Indication: ANALGESIC THERAPY
     Dosage: 100 MILLIGRAM
     Route: 058
  11. MIDAZOLAM. [Concomitant]
     Active Substance: MIDAZOLAM
     Indication: ANALGESIC THERAPY
     Dosage: 10 MILLIGRAM
     Route: 058
  12. WARFARIN [Concomitant]
     Active Substance: WARFARIN
     Indication: PULMONARY EMBOLISM
     Dosage: UNK
     Route: 065

REACTIONS (18)
  - International normalised ratio abnormal [Unknown]
  - Deep vein thrombosis [Unknown]
  - Hyponatraemia [Fatal]
  - Metastases to adrenals [Unknown]
  - Constipation [Unknown]
  - Agitation [Unknown]
  - Haemorrhage [Unknown]
  - Metastatic malignant melanoma [Fatal]
  - Lymphadenopathy [Unknown]
  - Tachycardia [Unknown]
  - Pulmonary embolism [Unknown]
  - Aggression [Unknown]
  - Hyperkalaemia [Unknown]
  - Tumour haemorrhage [Unknown]
  - General physical health deterioration [Not Recovered/Not Resolved]
  - Hypotension [Unknown]
  - Adrenal insufficiency [Unknown]
  - Confusional state [Unknown]
